FAERS Safety Report 7543469-6 (Version None)
Quarter: 2011Q2

REPORT INFORMATION
  Report Type: 
  Country: None (occurrence: None)
  Receive Date: 20110613
  Receipt Date: 20110601
  Transmission Date: 20111010
  Serious: Yes (Hospitalization, Other)
  Sender: FDA-Public Use
  Company Number: PHHY2011BR48167

PATIENT
  Sex: Female

DRUGS (1)
  1. DIOVAN [Suspect]
     Dosage: 160 MG, UNK

REACTIONS (4)
  - BLOOD PRESSURE INCREASED [None]
  - BLOOD PRESSURE DECREASED [None]
  - MALAISE [None]
  - INFARCTION [None]
